FAERS Safety Report 16639911 (Version 1)
Quarter: 2019Q3

REPORT INFORMATION
  Report Type: Spontaneous
  Country: US (occurrence: US)
  Receive Date: 20190727
  Receipt Date: 20190727
  Transmission Date: 20191004
  Serious: No
  Sender: FDA-Public Use
  Company Number: US-TAKEDA-2019TUS044788

PATIENT
  Age: 76 Year
  Sex: Female
  Weight: 65.76 kg

DRUGS (2)
  1. DEXILANT [Suspect]
     Active Substance: DEXLANSOPRAZOLE
     Indication: ABDOMINAL DISCOMFORT
     Dosage: 30 MILLIGRAM, QD
     Route: 048
     Dates: end: 20190716
  2. DEXILANT [Suspect]
     Active Substance: DEXLANSOPRAZOLE
     Indication: NAUSEA
     Dosage: 60 MILLIGRAM, QD
     Route: 048
     Dates: start: 20190717, end: 20190719

REACTIONS (2)
  - Muscular weakness [Unknown]
  - Drug ineffective [Unknown]
